FAERS Safety Report 7940006-9 (Version None)
Quarter: 2011Q4

REPORT INFORMATION
  Report Type: 
  Country: None (occurrence: None)
  Receive Date: 20111125
  Receipt Date: 20111116
  Transmission Date: 20120403
  Serious: No
  Sender: FDA-Public Use
  Company Number: US-PFIZER INC-2011281997

PATIENT
  Sex: Female
  Weight: 59 kg

DRUGS (8)
  1. TOPIRAMATE [Concomitant]
     Indication: COMPLEX REGIONAL PAIN SYNDROME
     Dosage: 50 MG, 2X/DAY
  2. OMEPRAZOLE [Concomitant]
     Indication: ABDOMINAL PAIN UPPER
     Dosage: 20 MG, 1X/DAY
  3. AMBIEN [Suspect]
     Indication: INSOMNIA
     Dosage: UNK
     Dates: start: 20110101, end: 20110101
  4. PROZAC [Concomitant]
     Indication: DEPRESSION
     Dosage: 90 MG, WEEKLY
  5. MORPHINE SULFATE [Suspect]
     Indication: COMPLEX REGIONAL PAIN SYNDROME
     Dosage: 200 MG, 2X/DAY
     Dates: start: 20110301
  6. LUNESTA [Suspect]
     Indication: INSOMNIA
     Dosage: UNK
     Dates: start: 20110101, end: 20110101
  7. AMBIEN CR [Suspect]
     Indication: INSOMNIA
     Dosage: UNK
     Dates: start: 20110101, end: 20110101
  8. SIMVASTATIN [Concomitant]
     Indication: BLOOD CHOLESTEROL ABNORMAL
     Dosage: 20 MG, 1X/DAY

REACTIONS (3)
  - INSOMNIA [None]
  - FATIGUE [None]
  - SOMNAMBULISM [None]
